FAERS Safety Report 12120575 (Version 1)
Quarter: 2016Q1

REPORT INFORMATION
  Report Type: Not Available
  Country: NO (occurrence: NO)
  Receive Date: 20160226
  Receipt Date: 20160226
  Transmission Date: 20160526
  Serious: Yes (Death)
  Sender: FDA-Public Use
  Company Number: NO-MUNDIPHARMA DS AND PHARMACOVIGILANCE-GBR-2016-0034152

PATIENT
  Age: 103 Year
  Sex: Male

DRUGS (15)
  1. BRONKYL [Concomitant]
     Dosage: 200 MG, PRN
  2. HALDOL [Concomitant]
     Active Substance: HALOPERIDOL
     Dosage: 0.5 MG, 1-2 TABLETS UP TO X 2
  3. SCHERIPROCT                        /00965401/ [Concomitant]
     Dosage: 1 DF, PRN
  4. MUCOMYST                           /00082801/ [Concomitant]
     Dosage: 200 MG, DAILY
  5. MOVICOL [Concomitant]
     Active Substance: POLYETHYLENE GLYCOL 3350\POTASSIUM CHLORIDE\SODIUM BICARBONATE\SODIUM CHLORIDE
     Dosage: 1 DF, UP TO 4 X DAY
  6. IMOVANE [Concomitant]
     Active Substance: ZOPICLONE
     Dosage: 7.5 MG, DAILY
  7. SOLVIPECT [Concomitant]
     Dosage: 5 ML, DAILY
  8. OMEPRAZOLE. [Concomitant]
     Active Substance: OMEPRAZOLE
     Dosage: 20 MG, DAILY
  9. LYRICA [Concomitant]
     Active Substance: PREGABALIN
     Dosage: 50 MG, SINGLE (ADMINISTERED IN ERROR)
  10. LAXOBERAL [Concomitant]
     Active Substance: SODIUM PICOSULFATE
     Dosage: UNK UNK, PRN
  11. PALEXIA [Concomitant]
     Active Substance: TAPENTADOL HYDROCHLORIDE
     Dosage: 50 MG, BID
  12. PALEXIA [Concomitant]
     Active Substance: TAPENTADOL HYDROCHLORIDE
     Dosage: 50 MG, AT EVENING, AS NEEDED
  13. PANODIL [Concomitant]
     Active Substance: ACETAMINOPHEN
     Dosage: 1000 MG,
  14. OXYCONTIN [Suspect]
     Active Substance: OXYCODONE HYDROCHLORIDE
     Indication: PRODUCT USED FOR UNKNOWN INDICATION
     Dosage: 90 MG, SINGLE
     Route: 065
  15. MOVICOL [Concomitant]
     Active Substance: POLYETHYLENE GLYCOL 3350\POTASSIUM CHLORIDE\SODIUM BICARBONATE\SODIUM CHLORIDE
     Dosage: 1 DF, DAILY

REACTIONS (6)
  - Medication error [Fatal]
  - Vomiting [Unknown]
  - Accidental overdose [Fatal]
  - Respiratory failure [Fatal]
  - Loss of consciousness [Fatal]
  - Pneumonia aspiration [Fatal]

NARRATIVE: CASE EVENT DATE: 20160115
